FAERS Safety Report 4677756-6 (Version None)
Quarter: 2005Q2

REPORT INFORMATION
  Report Type: 
  Country: None (occurrence: None)
  Receive Date: 20050527
  Receipt Date: 20050524
  Transmission Date: 20051028
  Serious: Yes (Death)
  Sender: FDA-Public Use
  Company Number: THQ2005A00466

PATIENT
  Age: 80 Year
  Sex: Female

DRUGS (10)
  1. LANSOPRAZOLE [Suspect]
     Dosage: 15 MG (15 MG, 1 IN 1 D)
     Route: 048
  2. SPIRIVA [Suspect]
     Indication: CHRONIC OBSTRUCTIVE PULMONARY DISEASE
     Dosage: 18 MCG (18 MCG, 1IN 1 D)
     Route: 055
  3. DEXAMETHASONE [Suspect]
     Dosage: 4 MG (2 MG, 2 IN 1 D)
     Route: 048
  4. LACTULOSE (SOLUTION) [Suspect]
     Dosage: (10 - 20 ML TWICE DAILY, 3.4 G/5 ML)
  5. PARACETAMOL [Suspect]
     Dosage: 4 G (1 G, 4 IN 1 D) PER ORAL
     Route: 048
  6. QUININE SULPHATE (QUININE SULFATE) [Suspect]
     Dosage: (1 IN 1 D) PER ORAL
     Route: 048
  7. SALBUTAMOL [Suspect]
     Dosage: SEE IMAGE INHALATION
     Route: 055
  8. SENNA [Suspect]
     Dosage: (1-2 ONCE A NIGHT)
  9. SERETIDE [Suspect]
     Dosage: (2 IN 1 D) INHALATION
     Route: 055
  10. AQUEOS CREAM [Concomitant]

REACTIONS (1)
  - NON-HODGKIN'S LYMPHOMA [None]
